FAERS Safety Report 7439307-2 (Version None)
Quarter: 2011Q2

REPORT INFORMATION
  Report Type: 
  Country: None (occurrence: None)
  Receive Date: 20110427
  Receipt Date: 20110425
  Transmission Date: 20111010
  Serious: No
  Sender: FDA-Public Use
  Company Number: US-PFIZER INC-2011089116

PATIENT
  Sex: Male
  Weight: 87 kg

DRUGS (3)
  1. LIPITOR [Concomitant]
     Indication: PROPHYLAXIS
     Dosage: UNK
  2. ASPIRIN [Concomitant]
     Indication: PROPHYLAXIS
     Dosage: UNK
  3. PRISTIQ [Suspect]
     Indication: POST-TRAUMATIC STRESS DISORDER
     Dosage: 50 MG, 1X/DAY
     Route: 048
     Dates: start: 20110420

REACTIONS (1)
  - FATIGUE [None]
